FAERS Safety Report 4699765-3 (Version None)
Quarter: 2005Q2

REPORT INFORMATION
  Report Type: 
  Country: None (occurrence: None)
  Receive Date: 20050623
  Receipt Date: 20050616
  Transmission Date: 20051028
  Serious: Yes (Hospitalization)
  Sender: FDA-Public Use
  Company Number: 232545K05USA

PATIENT
  Age: 39 Year
  Sex: Female

DRUGS (3)
  1. REBIF [Suspect]
     Indication: MULTIPLE SCLEROSIS
     Dosage: 44 MCG  3 IN 1 WEEKS SUBCUTANEOUS
     Route: 058
     Dates: start: 20050513
  2. CODEINE SUL TAB [Suspect]
     Indication: MULTIPLE SCLEROSIS
  3. DETROL [Suspect]

REACTIONS (1)
  - CONVULSION [None]
